FAERS Safety Report 6804661-9 (Version None)
Quarter: 2010Q2

REPORT INFORMATION
  Report Type: 
  Country: None (occurrence: None)
  Receive Date: 20100628
  Receipt Date: 20070521
  Transmission Date: 20101027
  Serious: No
  Sender: FDA-Public Use
  Company Number: US-PFIZER INC-2007022080

PATIENT
  Sex: Female
  Weight: 50.8 kg

DRUGS (3)
  1. DOSTINEX [Suspect]
     Indication: PITUITARY TUMOUR BENIGN
     Dosage: 2 EVERY 1 WEEKS
     Dates: start: 20040101
  2. CABERGOLINE [Suspect]
     Indication: PITUITARY TUMOUR BENIGN
     Dosage: 2 EVERY 1 WEEKS
     Route: 048
     Dates: start: 20070307
  3. THYROID TAB [Concomitant]
     Indication: THYROID THERAPY

REACTIONS (5)
  - ABDOMINAL DISCOMFORT [None]
  - DISCOMFORT [None]
  - DYSGEUSIA [None]
  - FATIGUE [None]
  - MALAISE [None]
